FAERS Safety Report 4327886-3 (Version None)
Quarter: 2004Q1

REPORT INFORMATION
  Report Type: 
  Country: None (occurrence: None)
  Receive Date: 20040324
  Receipt Date: 20040315
  Transmission Date: 20041129
  Serious: Yes (Death)
  Sender: FDA-Public Use
  Company Number: US-JNJFOC-20040103732

PATIENT
  Age: 74 Year
  Sex: Male

DRUGS (4)
  1. RISPERDAL [Suspect]
     Indication: DEMENTIA
     Dosage: 3 MG, IN 1 DAY,
     Dates: start: 20030801, end: 20040107
  2. REMINYL [Concomitant]
  3. CELEXA [Concomitant]
  4. XANAX [Concomitant]

REACTIONS (4)
  - AGITATION [None]
  - CARDIAC DISORDER [None]
  - DELUSION [None]
  - PSYCHOTIC DISORDER [None]
